FAERS Safety Report 6557491-X (Version None)
Quarter: 2010Q1

REPORT INFORMATION
  Report Type: 
  Country: None (occurrence: None)
  Receive Date: 20100128
  Receipt Date: 20100128
  Transmission Date: 20100710
  Serious: Yes (Other)
  Sender: FDA-Public Use
  Company Number: None

PATIENT
  Sex: Female
  Weight: 108.8633 kg

DRUGS (2)
  1. PEG-INTRON [Suspect]
     Indication: HEPATITIS C
     Dosage: 150 MCG/0.5 ML WEEKLY SQ
     Route: 058
     Dates: start: 20100118
  2. RIBAVIRIN [Suspect]
     Indication: HEPATITIS C
     Dosage: 3 IN AM; 4 IN PM BID PO
     Route: 048
     Dates: start: 20100118

REACTIONS (2)
  - MEDICATION ERROR [None]
  - UNDERDOSE [None]
